FAERS Safety Report 16324098 (Version 3)
Quarter: 2020Q1

REPORT INFORMATION
  Report Type: Spontaneous
  Country: GB (occurrence: GB)
  Receive Date: 20190517
  Receipt Date: 20200124
  Transmission Date: 20200409
  Serious: Yes (Hospitalization, Disabling)
  Sender: FDA-Public Use
  Company Number: GB-ACCORD-127958

PATIENT
  Age: 50 Year
  Sex: Female
  Weight: 64.8 kg

DRUGS (9)
  1. CALCICHEW D3 [Concomitant]
     Active Substance: CALCIUM\CHOLECALCIFEROL
  2. AMLODIPINE [Concomitant]
     Active Substance: AMLODIPINE BESYLATE
  3. PREDNISOLONE. [Concomitant]
     Active Substance: PREDNISOLONE
  4. SIMVASTATIN. [Suspect]
     Active Substance: SIMVASTATIN
     Indication: PRODUCT USED FOR UNKNOWN INDICATION
     Route: 048
  5. OMEPRAZOLE. [Concomitant]
     Active Substance: OMEPRAZOLE
  6. POSACONAZOLE [Interacting]
     Active Substance: POSACONAZOLE
     Indication: ANTIFUNGAL TREATMENT
     Route: 048
     Dates: start: 20190123, end: 20190302
  7. AZITHROMYCIN ANHYDROUS. [Concomitant]
     Active Substance: AZITHROMYCIN ANHYDROUS
  8. CICLOSPORIN [Concomitant]
     Active Substance: CYCLOSPORINE
     Dosage: DOSE ADJUSTED UNDER GUIDANCE OF THE TRANSPLANT TEAM.
  9. FOLIC ACID. [Concomitant]
     Active Substance: FOLIC ACID

REACTIONS (6)
  - Acute kidney injury [Recovered/Resolved]
  - Contraindicated product administered [Unknown]
  - Labelled drug-drug interaction medication error [Unknown]
  - Malaise [Unknown]
  - Nausea [Unknown]
  - Vomiting [Unknown]

NARRATIVE: CASE EVENT DATE: 20190305
